FAERS Safety Report 8560534-5 (Version None)
Quarter: 2012Q3

REPORT INFORMATION
  Report Type: 
  Country: None (occurrence: None)
  Receive Date: 20120802
  Receipt Date: 20120720
  Transmission Date: 20120928
  Serious: No
  Sender: FDA-Public Use
  Company Number: US-ASTRAZENECA-2012SE51817

PATIENT
  Sex: Female

DRUGS (5)
  1. NEXIUM [Suspect]
     Dosage: 40 MG, AT 3 AM IN THE MORNING
     Route: 048
  2. PREVACID [Concomitant]
     Dosage: GENERIC
  3. NEXIUM [Suspect]
     Indication: GASTROOESOPHAGEAL REFLUX DISEASE
     Route: 048
  4. NEXIUM [Suspect]
     Dosage: 40 MG, AT 3 AM IN THE MORNING
     Route: 048
  5. NEXIUM [Suspect]
     Indication: ABDOMINAL PAIN UPPER
     Route: 048

REACTIONS (3)
  - BONE PAIN [None]
  - OSTEOPOROSIS [None]
  - ADVERSE DRUG REACTION [None]
